FAERS Safety Report 9315448 (Version 1)
Quarter: 2013Q2

REPORT INFORMATION
  Report Type: Spontaneous
  Country: US (occurrence: US)
  Receive Date: 20130529
  Receipt Date: 20130529
  Transmission Date: 20140414
  Serious: Yes (Hospitalization)
  Sender: FDA-Public Use
  Company Number: US-BAXTER-2013BAX014013

PATIENT
  Age: 83 Year
  Sex: Male

DRUGS (4)
  1. DIANEAL LOW CALCIUM [Suspect]
     Indication: PERITONEAL DIALYSIS
     Route: 033
  2. DIANEAL LOW CALCIUM [Suspect]
     Route: 033
  3. DIANEAL LOW CALCIUM [Suspect]
     Route: 033
     Dates: start: 20130423
  4. DIANEAL LOW CALCIUM [Suspect]
     Route: 033
     Dates: start: 20130423

REACTIONS (3)
  - Dementia [Recovering/Resolving]
  - Blood calcium increased [Recovering/Resolving]
  - Hypotension [Recovered/Resolved]
